FAERS Safety Report 6460440-6 (Version None)
Quarter: 2009Q4

REPORT INFORMATION
  Report Type: 
  Country: None (occurrence: None)
  Receive Date: 20091130
  Receipt Date: 20091116
  Transmission Date: 20100525
  Serious: Yes (Congenital Anomaly)
  Sender: FDA-Public Use
  Company Number: GB-CELGENEUS-167-20484-09111552

PATIENT
  Sex: Male
  Weight: 3.46 kg

DRUGS (5)
  1. INNOHEP [Suspect]
     Route: 064
     Dates: start: 20020521
  2. INNOHEP [Suspect]
     Dates: end: 20021017
  3. CALCICHEW D3 [Concomitant]
     Route: 064
     Dates: start: 20020527
  4. ENTONOX [Concomitant]
     Route: 064
     Dates: start: 20021007, end: 20021007
  5. SYNTOMETRINE [Concomitant]
     Route: 064
     Dates: start: 20021007, end: 20021007

REACTIONS (2)
  - DRUG EXPOSURE DURING PREGNANCY [None]
  - MECONIUM ILEUS [None]
